FAERS Safety Report 4788969-7 (Version None)
Quarter: 2005Q4

REPORT INFORMATION
  Report Type: 
  Country: None (occurrence: None)
  Receive Date: 20051004
  Receipt Date: 20050919
  Transmission Date: 20060501
  Serious: Yes (Other)
  Sender: FDA-Public Use
  Company Number: 2005-130538-NL

PATIENT
  Age: 38 Year
  Sex: Female
  Weight: 74.8 kg

DRUGS (2)
  1. NUVARING [Suspect]
     Indication: CONTRACEPTION
     Dosage: VAGINAL, 3 WEEKS IN/ 1 WEEK OUT
     Route: 067
     Dates: start: 20050301, end: 20050714
  2. LISINOPRIL [Concomitant]

REACTIONS (2)
  - HYPERTENSION [None]
  - VENTRICULAR EXTRASYSTOLES [None]
